FAERS Safety Report 11402386 (Version 1)
Quarter: 2015Q3

REPORT INFORMATION
  Report Type: Spontaneous
  Country: US (occurrence: US)
  Receive Date: 20150821
  Receipt Date: 20150821
  Transmission Date: 20151125
  Serious: No
  Sender: FDA-Public Use
  Company Number: US-ROCHE-1344523

PATIENT
  Sex: Female

DRUGS (3)
  1. PEGASYS [Suspect]
     Active Substance: PEGINTERFERON ALFA-2A
     Indication: CHRONIC HEPATITIS C
     Route: 058
     Dates: start: 20140203
  2. RIBAVIRIN. [Suspect]
     Active Substance: RIBAVIRIN
     Indication: CHRONIC HEPATITIS C
     Route: 048
     Dates: start: 20140203
  3. SOFOSBUVIR [Concomitant]
     Active Substance: SOFOSBUVIR

REACTIONS (8)
  - Chills [Unknown]
  - Vomiting [Unknown]
  - Arthralgia [Unknown]
  - Headache [Unknown]
  - Bone pain [Unknown]
  - Hyperhidrosis [Unknown]
  - Dizziness [Unknown]
  - Pain [Unknown]
